FAERS Safety Report 4601546-3 (Version None)
Quarter: 2005Q1

REPORT INFORMATION
  Report Type: 
  Country: None (occurrence: None)
  Receive Date: 20050131
  Receipt Date: 20050131
  Transmission Date: 20050727
  Serious: No
  Sender: FDA-Public Use
  Company Number: 200418654US

PATIENT
  Age: 56 Year
  Sex: Female

DRUGS (5)
  1. KETEK [Suspect]
     Indication: SINUSITIS
     Dosage: 800 MG QD PO
     Route: 048
     Dates: start: 20040928, end: 20041007
  2. DESLORATADINE [Concomitant]
  3. FLUTICASONE PROPIONATE [Concomitant]
  4. SALMETEROL XINAFOATE (ADVAIR) [Concomitant]
  5. MOMETASONE FUROATE (NASONEX) [Concomitant]

REACTIONS (1)
  - PALPITATIONS [None]
